FAERS Safety Report 9493301 (Version 2)
Quarter: 2013Q3

REPORT INFORMATION
  Report Type: Report from Study
  Country: IN (occurrence: IN)
  Receive Date: 20130902
  Receipt Date: 20130902
  Transmission Date: 20140515
  Serious: Yes (Death, Hospitalization)
  Sender: FDA-Public Use
  Company Number: PHHO2011IN06050

PATIENT
  Age: 68 Year
  Sex: Female
  Weight: 65 kg

DRUGS (1)
  1. ALISKIREN [Suspect]
     Indication: CARDIOVASCULAR DISORDER
     Route: 048
     Dates: start: 20090210

REACTIONS (1)
  - Disease progression [Fatal]
